FAERS Safety Report 7207230-4 (Version None)
Quarter: 2011Q1

REPORT INFORMATION
  Report Type: 
  Country: None (occurrence: None)
  Receive Date: 20110103
  Receipt Date: 20101222
  Transmission Date: 20110831
  Serious: Yes (Hospitalization)
  Sender: FDA-Public Use
  Company Number: PT-ROCHE-750236

PATIENT
  Age: 62 Year
  Sex: Male

DRUGS (6)
  1. TRUVADA [Suspect]
     Indication: HIV INFECTION
     Route: 065
     Dates: start: 20050101, end: 20080101
  2. AZT [Concomitant]
     Dates: start: 19900101, end: 19970101
  3. TIPRANAVIR [Concomitant]
     Dates: start: 20060101, end: 20080101
  4. RITONAVIR [Concomitant]
     Dates: start: 20060101, end: 20080101
  5. RITONAVIR [Concomitant]
     Dates: start: 19980101
  6. ENFUVIRTIDE [Suspect]
     Indication: HIV INFECTION
     Route: 065
     Dates: start: 20060101, end: 20080101

REACTIONS (3)
  - HEPATITIS TOXIC [None]
  - VIRAL LOAD [None]
  - DRUG INTOLERANCE [None]
